FAERS Safety Report 6368427-9 (Version None)
Quarter: 2009Q3

REPORT INFORMATION
  Report Type: 
  Country: None (occurrence: None)
  Receive Date: 20090922
  Receipt Date: 20090916
  Transmission Date: 20100115
  Serious: Yes (Death, Hospitalization, Other)
  Sender: FDA-Public Use
  Company Number: NL-AVENTIS-200920523GDDC

PATIENT
  Age: 63 Year
  Sex: Female

DRUGS (2)
  1. TAXOTERE [Suspect]
     Route: 041
  2. TRASTUZUMAB [Suspect]

REACTIONS (2)
  - INTERSTITIAL LUNG DISEASE [None]
  - SEPSIS [None]
